FAERS Safety Report 8012425-6 (Version None)
Quarter: 2011Q4

REPORT INFORMATION
  Report Type: 
  Country: None (occurrence: None)
  Receive Date: 20111228
  Receipt Date: 20111227
  Transmission Date: 20120403
  Serious: Yes (Death, Hospitalization, Other)
  Sender: FDA-Public Use
  Company Number: US-ROCHE-1022379

PATIENT
  Age: 58 Year
  Sex: Male
  Weight: 53 kg

DRUGS (3)
  1. DOCETAXEL [Suspect]
     Indication: SQUAMOUS CELL CARCINOMA
     Dosage: OVER 1 HOUR, ON DAY 1
     Route: 042
     Dates: start: 20111102
  2. AVASTIN [Suspect]
     Indication: SQUAMOUS CELL CARCINOMA
     Dosage: OVER 30-90 MINUTES, ON DAY 1
     Route: 042
     Dates: start: 20111102
  3. CISPLATIN [Suspect]
     Indication: SQUAMOUS CELL CARCINOMA
     Dosage: OVER 1-2 HOURS ON DAY 1
     Route: 042
     Dates: start: 20111102

REACTIONS (3)
  - HAEMOPTYSIS [None]
  - SINUS TACHYCARDIA [None]
  - PULMONARY HAEMORRHAGE [None]
